FAERS Safety Report 4682779-7 (Version None)
Quarter: 2005Q2

REPORT INFORMATION
  Report Type: 
  Country: None (occurrence: None)
  Receive Date: 20050602
  Receipt Date: 20050420
  Transmission Date: 20051028
  Serious: No
  Sender: FDA-Public Use
  Company Number: USA050496127

PATIENT
  Age: 79 Year
  Sex: Female

DRUGS (4)
  1. CYMBALTA [Suspect]
     Indication: DEPRESSION
     Dosage: 30 MG IN THE EVENING
     Dates: start: 20050401
  2. XANAX (ALPRAZOLAM DUM) [Concomitant]
  3. LORTAB [Concomitant]
  4. LEXAPRO [Concomitant]

REACTIONS (3)
  - DIZZINESS [None]
  - FEAR [None]
  - FEELING ABNORMAL [None]
